FAERS Safety Report 11058094 (Version 2)
Quarter: 2015Q2

REPORT INFORMATION
  Report Type: Spontaneous
  Country: FI (occurrence: FI)
  Receive Date: 20150423
  Receipt Date: 20150508
  Transmission Date: 20150821
  Serious: Yes (Life-Threatening, Hospitalization)
  Sender: FDA-Public Use
  Company Number: FI-BAYER-2015-128477

PATIENT
  Age: 37 Year
  Sex: Female

DRUGS (1)
  1. MIRENA [Suspect]
     Active Substance: LEVONORGESTREL
     Indication: CONTRACEPTION
     Dosage: 20 MCG/24HR, CONT
     Route: 015
     Dates: start: 20141118, end: 20150424

REACTIONS (2)
  - Deep vein thrombosis [Not Recovered/Not Resolved]
  - Thrombosis [None]

NARRATIVE: CASE EVENT DATE: 201502
